FAERS Safety Report 15365871 (Version 1)
Quarter: 2018Q3

REPORT INFORMATION
  Report Type: Spontaneous
  Country: US (occurrence: US)
  Receive Date: 20180910
  Receipt Date: 20180910
  Transmission Date: 20181010
  Serious: Yes (Death)
  Sender: FDA-Public Use
  Company Number: US-PERRIGO-18US008777

PATIENT
  Age: 37 Year
  Sex: Male

DRUGS (1)
  1. ACETAMINOPHEN. [Suspect]
     Active Substance: ACETAMINOPHEN
     Indication: PRODUCT USED FOR UNKNOWN INDICATION
     Dosage: UNK
     Route: 048

REACTIONS (12)
  - Metabolic acidosis [Fatal]
  - Coagulopathy [Fatal]
  - Toxicity to various agents [Fatal]
  - Hypotension [Fatal]
  - Anion gap abnormal [Fatal]
  - Hepatotoxicity [Fatal]
  - Gastrointestinal haemorrhage [Fatal]
  - Acute kidney injury [Fatal]
  - Tachycardia [Fatal]
  - Pneumonia aspiration [Fatal]
  - Depressed level of consciousness [Fatal]
  - Leukocytosis [Fatal]
